FAERS Safety Report 6972733-4 (Version None)
Quarter: 2010Q3

REPORT INFORMATION
  Report Type: 
  Country: None (occurrence: None)
  Receive Date: 20100909
  Receipt Date: 20100902
  Transmission Date: 20110219
  Serious: Yes (Hospitalization)
  Sender: FDA-Public Use
  Company Number: DE-MPIJNJ-2010-03059

PATIENT

DRUGS (1)
  1. VELCADE [Suspect]
     Indication: MULTIPLE MYELOMA
     Dosage: 2.2 MG, UNK
     Route: 042
     Dates: start: 20100321, end: 20100525

REACTIONS (3)
  - BACK PAIN [None]
  - FACIAL PAIN [None]
  - HERPES ZOSTER [None]
